FAERS Safety Report 9184267 (Version 1)
Quarter: 2012Q4

REPORT INFORMATION
  Report Type: 
  Country: US (occurrence: US)
  Receive Date: 20121031
  Receipt Date: 20121031
  Transmission Date: 20130627
  Serious: No
  Sender: FDA-Public Use
  Company Number: US-009507513-1210USA008083

PATIENT
  Age: 28 Year
  Sex: Female

DRUGS (2)
  1. SAPHRIS [Suspect]
     Indication: BIPOLAR DISORDER
     Dosage: 7.5 mg, every night at bedtime
     Route: 060
  2. LAMICTAL [Concomitant]

REACTIONS (4)
  - Breast engorgement [Unknown]
  - Breast tenderness [Unknown]
  - Wrong technique in drug usage process [Unknown]
  - Off label use [Unknown]
